FAERS Safety Report 9337733 (Version 3)
Quarter: 2013Q2

REPORT INFORMATION
  Report Type: Spontaneous
  Country: CA (occurrence: CA)
  Receive Date: 20130607
  Receipt Date: 20130619
  Transmission Date: 20140414
  Serious: Yes (Other)
  Sender: FDA-Public Use
  Company Number: CHPA2013CA009396

PATIENT
  Age: 65 Year
  Sex: Female

DRUGS (2)
  1. VOLTAREN EMULGEL [Suspect]
     Indication: ARTHRITIS
     Dosage: UNK, UNK
     Route: 061
     Dates: start: 20121123, end: 20130603
  2. IBUPROFEN [Suspect]

REACTIONS (20)
  - Dyspnoea [Recovered/Resolved]
  - Gait disturbance [Recovering/Resolving]
  - Dysstasia [Recovering/Resolving]
  - Pain in jaw [Not Recovered/Not Resolved]
  - Vascular pain [Not Recovered/Not Resolved]
  - Gingival infection [Unknown]
  - Tremor [Recovering/Resolving]
  - Loose tooth [Recovering/Resolving]
  - Visual impairment [Recovering/Resolving]
  - Hearing impaired [Recovering/Resolving]
  - Pain in extremity [Not Recovered/Not Resolved]
  - Headache [Recovering/Resolving]
  - Insomnia [Unknown]
  - Hyperhidrosis [Unknown]
  - Skin sensitisation [Unknown]
  - Dysuria [Unknown]
  - Ear pain [Unknown]
  - Ear swelling [Unknown]
  - Off label use [Unknown]
  - Incorrect drug administration duration [Unknown]
